FAERS Safety Report 20740298 (Version 2)
Quarter: 2022Q2

REPORT INFORMATION
  Report Type: Spontaneous
  Country: JP (occurrence: JP)
  Receive Date: 20220422
  Receipt Date: 20220531
  Transmission Date: 20220721
  Serious: Yes (Hospitalization, Other)
  Sender: FDA-Public Use
  Company Number: JP-PFIZER INC-202200574670

PATIENT
  Age: 69 Year
  Sex: Male
  Weight: 59 kg

DRUGS (7)
  1. VYNDAQEL [Suspect]
     Active Substance: TAFAMIDIS MEGLUMINE
     Indication: Cardiac amyloidosis
     Dosage: UNK
     Route: 048
     Dates: start: 201912
  2. BISOPROLOL [Concomitant]
     Active Substance: BISOPROLOL
     Indication: Cardiac failure
     Dosage: 1.25 MG
     Route: 048
     Dates: start: 2017
  3. BISOPROLOL [Concomitant]
     Active Substance: BISOPROLOL
     Indication: Arrhythmia
  4. FUROSEMIDE [Concomitant]
     Active Substance: FUROSEMIDE
     Indication: Cardiac failure
     Dosage: 120 MG
     Route: 048
     Dates: start: 2017
  5. TOLVAPTAN [Concomitant]
     Active Substance: TOLVAPTAN
     Indication: Cardiac failure
     Dosage: 15 MG
     Route: 048
     Dates: start: 2017
  6. ENALAPRIL [Concomitant]
     Active Substance: ENALAPRIL
     Indication: Cardiac failure
     Dosage: 5 MG
     Route: 048
     Dates: start: 2017
  7. AMIODARONE [Concomitant]
     Active Substance: AMIODARONE
     Indication: Arrhythmia
     Dosage: 100 MG
     Route: 048
     Dates: start: 2017

REACTIONS (5)
  - Cardiac failure [Recovered/Resolved]
  - Ventricular arrhythmia [Recovered/Resolved]
  - Cardiac dysfunction [Unknown]
  - Bradyarrhythmia [Recovered/Resolved]
  - Atrioventricular block [Recovered/Resolved]

NARRATIVE: CASE EVENT DATE: 20200708
